FAERS Safety Report 13894276 (Version 5)
Quarter: 2017Q3

REPORT INFORMATION
  Report Type: Report from Study
  Country: None (occurrence: BE)
  Receive Date: 20170822
  Receipt Date: 20170921
  Transmission Date: 20171127
  Serious: Yes (Hospitalization)
  Sender: FDA-Public Use
  Company Number: BE-ABBVIE-17K-013-2077728-00

PATIENT
  Sex: Female

DRUGS (24)
  1. DUODOPA [Suspect]
     Active Substance: CARBIDOPA\LEVODOPA
     Dosage: MD= 5.5 ML; CD= 3.4 ML/H DURING 16 HRS; EDA= 1.5 ML
     Route: 050
     Dates: start: 20170825, end: 20170919
  2. STALEVO 150 [Concomitant]
     Indication: PRODUCT USED FOR UNKNOWN INDICATION
  3. DUODOPA [Suspect]
     Active Substance: CARBIDOPA\LEVODOPA
     Indication: PARKINSON^S DISEASE
     Dosage: MD=5.5ML??CD=3.2ML/HR DURING 16HRS ??EDA=1ML
     Route: 050
     Dates: start: 20170814, end: 20170818
  4. DUODOPA [Suspect]
     Active Substance: CARBIDOPA\LEVODOPA
     Dosage: MD: 7 ML, CD: 3.7 ML/HR DURING 16 HRS, EDA: 1.5 ML
     Route: 050
     Dates: start: 20170919
  5. EMCONCOR [Concomitant]
     Active Substance: BISOPROLOL FUMARATE
     Indication: PRODUCT USED FOR UNKNOWN INDICATION
  6. RAMIPRIL. [Concomitant]
     Active Substance: RAMIPRIL
     Indication: PRODUCT USED FOR UNKNOWN INDICATION
  7. DUODOPA [Suspect]
     Active Substance: CARBIDOPA\LEVODOPA
     Dosage: MD=5.5ML??CD=3.2ML/HR DURING 16HRS ??EDA=1.5ML
     Route: 050
     Dates: start: 20170818, end: 20170825
  8. STALEVO 150 [Concomitant]
     Dosage: FORM STRENGTH: 150MG/37.5MG/200MG, 5 TIME/DAY AS RESCUE MEDICATION
  9. STALEVO 100 [Concomitant]
  10. STALEVO 100 [Concomitant]
     Indication: PRODUCT USED FOR UNKNOWN INDICATION
  11. STALEVO 100 [Concomitant]
  12. TRANXENE T-TAB [Concomitant]
     Active Substance: CLORAZEPATE DIPOTASSIUM
     Indication: PRODUCT USED FOR UNKNOWN INDICATION
  13. MIRTAZAPINE. [Concomitant]
     Active Substance: MIRTAZAPINE
     Indication: PRODUCT USED FOR UNKNOWN INDICATION
  14. SIPRALEXA [Concomitant]
     Active Substance: ESCITALOPRAM OXALATE
     Indication: PRODUCT USED FOR UNKNOWN INDICATION
  15. PROLOPA 125 HBS [Concomitant]
     Indication: PARKINSON^S DISEASE
     Route: 048
  16. PROLOPA 125 HBS [Concomitant]
     Route: 048
  17. STALEVO 100 [Concomitant]
     Dosage: FORM STRENGTH: 100MG/25MG/200MG, ONCE A DAY AS RESCUE MEDICATION
  18. STEOVIT [Concomitant]
     Active Substance: CALCIUM CARBONATE
     Indication: PRODUCT USED FOR UNKNOWN INDICATION
  19. PROLOPA 125 HBS [Concomitant]
  20. CARDIOASPIRIN [Concomitant]
     Active Substance: ASPIRIN
     Indication: PRODUCT USED FOR UNKNOWN INDICATION
  21. STALEVO 150 [Concomitant]
  22. STALEVO 150 [Concomitant]
  23. DOMPERIDON [Concomitant]
     Active Substance: DOMPERIDONE
     Indication: PRODUCT USED FOR UNKNOWN INDICATION
  24. LORAZEPAM. [Concomitant]
     Active Substance: LORAZEPAM
     Indication: PRODUCT USED FOR UNKNOWN INDICATION

REACTIONS (18)
  - Stoma site erythema [Unknown]
  - Drug ineffective [Unknown]
  - Nervousness [Unknown]
  - Stoma site irritation [Recovering/Resolving]
  - On and off phenomenon [Not Recovered/Not Resolved]
  - Freezing phenomenon [Unknown]
  - Urinary tract infection [Unknown]
  - Drug ineffective [Not Recovered/Not Resolved]
  - Stoma site discharge [Recovering/Resolving]
  - Stoma site haemorrhage [Unknown]
  - Depressed mood [Unknown]
  - Dyskinesia [Unknown]
  - Poor quality sleep [Unknown]
  - Constipation [Unknown]
  - Anxiety [Unknown]
  - Psychiatric symptom [Unknown]
  - Abdominal pain [Not Recovered/Not Resolved]
  - Decreased appetite [Unknown]

NARRATIVE: CASE EVENT DATE: 2017
